FAERS Safety Report 4361267-1 (Version None)
Quarter: 2004Q2

REPORT INFORMATION
  Report Type: 
  Country: None (occurrence: None)
  Receive Date: 20040520
  Receipt Date: 20040518
  Transmission Date: 20050107
  Serious: Yes (Hospitalization)
  Sender: FDA-Public Use
  Company Number: US-GLAXOSMITHKLINE-A0511250A

PATIENT
  Sex: Male

DRUGS (4)
  1. ADVAIR DISKUS 100/50 [Suspect]
     Indication: ILL-DEFINED DISORDER
     Route: 055
  2. ZYRTEC [Concomitant]
  3. ALBUTEROL [Concomitant]
  4. PRAVACHOL [Concomitant]

REACTIONS (1)
  - ANAPHYLACTIC SHOCK [None]
